FAERS Safety Report 5397743-2 (Version None)
Quarter: 2007Q3

REPORT INFORMATION
  Report Type: 
  Country: None (occurrence: None)
  Receive Date: 20070726
  Receipt Date: 20070720
  Transmission Date: 20080115
  Serious: Yes (Hospitalization)
  Sender: FDA-Public Use
  Company Number: A0654145A

PATIENT
  Age: 53 Year
  Sex: Female
  Weight: 75.5 kg

DRUGS (10)
  1. TYKERB [Suspect]
     Indication: BREAST CANCER
     Route: 048
     Dates: start: 20070419, end: 20070515
  2. XELODA [Suspect]
     Indication: BREAST CANCER
     Route: 048
     Dates: start: 20070419, end: 20070515
  3. OXYCONTIN [Concomitant]
     Dosage: 80MG TWICE PER DAY
     Route: 048
  4. OXY-IR [Concomitant]
     Dosage: 15MG AS REQUIRED
     Route: 048
  5. LEXAPRO [Concomitant]
     Dosage: 10MG PER DAY
     Route: 048
  6. ENALAPRIL MALEATE [Concomitant]
     Dosage: 5MG PER DAY
     Route: 048
  7. COZAAR [Concomitant]
     Dosage: 25MG PER DAY
     Route: 048
  8. PRILOSEC [Concomitant]
     Dosage: 20MG PER DAY
     Route: 048
  9. LASIX [Concomitant]
     Dosage: 20MG PER DAY
     Route: 048
  10. POTASSIUM CHLORIDE [Concomitant]
     Dosage: 20MEQ PER DAY
     Route: 048

REACTIONS (9)
  - CHILLS [None]
  - COLD SWEAT [None]
  - DIARRHOEA [None]
  - METASTASES TO LIVER [None]
  - MOUTH ULCERATION [None]
  - NAUSEA [None]
  - PALMAR-PLANTAR ERYTHRODYSAESTHESIA SYNDROME [None]
  - SKIN FISSURES [None]
  - SOMNOLENCE [None]
